FAERS Safety Report 8911328 (Version 2)
Quarter: 2013Q4

REPORT INFORMATION
  Report Type: Spontaneous
  Country: US (occurrence: US)
  Receive Date: 20121116
  Receipt Date: 20131217
  Transmission Date: 20140711
  Serious: No
  Sender: FDA-Public Use
  Company Number: US-GLAXOSMITHKLINE-A0997311A

PATIENT
  Age: 82 Year
  Sex: Male

DRUGS (10)
  1. VOTRIENT [Suspect]
     Indication: METASTASES TO CENTRAL NERVOUS SYSTEM
     Dosage: 200MG PER DAY
     Route: 048
     Dates: start: 20120905, end: 201210
  2. JANUVIA [Concomitant]
  3. LISINOPRIL [Concomitant]
  4. CENTRUM SILVER [Concomitant]
  5. GLYBURIDE [Concomitant]
  6. TEA [Concomitant]
  7. RED YEAST RICE [Concomitant]
  8. NIACIN [Concomitant]
  9. QUININE [Concomitant]
  10. VITAMIN K [Concomitant]

REACTIONS (4)
  - Pain in extremity [Not Recovered/Not Resolved]
  - Hyperaesthesia [Unknown]
  - Hypertension [Unknown]
  - Weight decreased [Unknown]
